FAERS Safety Report 5925181-X (Version None)
Quarter: 2008Q3

REPORT INFORMATION
  Report Type: 
  Country: None (occurrence: None)
  Receive Date: 20080909
  Receipt Date: 20070820
  Transmission Date: 20090109
  Serious: Yes (Hospitalization)
  Sender: FDA-Public Use
  Company Number: 163-20785-07081750

PATIENT
  Age: 57 Year
  Sex: Female
  Weight: 57.4 kg

DRUGS (17)
  1. THALOMID [Suspect]
     Indication: MULTIPLE MYELOMA
     Dosage: 200MG - 50MG, ORAL
     Route: 048
     Dates: start: 20060325, end: 20070503
  2. VELCADE [Suspect]
     Indication: MULTIPLE MYELOMA
     Dosage: 1.7MG - 1.53MG
     Dates: start: 20060322, end: 20070503
  3. DEXAMETHASONE TAB [Suspect]
     Indication: MULTIPLE MYELOMA
     Dosage: 40MG - 20MG
     Dates: start: 20060325, end: 20070503
  4. CISPLATIN [Suspect]
     Indication: MULTIPLE MYELOMA
     Dosage: 9 MG
     Dates: start: 20060325, end: 20060423
  5. ADRIAMYCIN PFS [Suspect]
     Indication: MULTIPLE MYELOMA
     Dosage: 17 MG
     Dates: start: 20060325, end: 20060423
  6. CYCLOPHOSPHAMIDE [Suspect]
     Indication: MULTIPLE MYELOMA
     Dosage: 684MG - 690MG
     Dates: start: 20060325, end: 20060423
  7. ETOPOSIDE [Suspect]
     Indication: MULTIPLE MYELOMA
     Dosage: 68MG - 69MG
     Dates: start: 20060325, end: 20060423
  8. MELPHALAN (MELPHALAN) [Suspect]
     Indication: MULTIPLE MYELOMA
     Dosage: 338MG - 330MG
     Dates: start: 20060518, end: 20060924
  9. RESTORIL [Concomitant]
  10. GAMMAGARD S/D [Concomitant]
  11. PRILOSEC [Concomitant]
  12. NEXIUM [Concomitant]
  13. REGLAN [Concomitant]
  14. AMBIEN CR [Concomitant]
  15. LASIX [Concomitant]
  16. AVAPRO [Concomitant]
  17. LEVOXYL [Concomitant]

REACTIONS (1)
  - PYREXIA [None]
